FAERS Safety Report 5480441-4 (Version None)
Quarter: 2007Q4

REPORT INFORMATION
  Report Type: 
  Country: None (occurrence: None)
  Receive Date: 20071009
  Receipt Date: 20071005
  Transmission Date: 20080405
  Serious: Yes (Other)
  Sender: FDA-Public Use
  Company Number: A0686352A

PATIENT
  Age: 82 Year
  Sex: Male

DRUGS (2)
  1. AVODART [Suspect]
     Indication: PROSTATIC DISORDER
     Dosage: 1CAP PER DAY
     Route: 048
     Dates: start: 20071001
  2. CIPRO [Concomitant]
     Dosage: 1TAB TWICE PER DAY
     Dates: start: 20071001

REACTIONS (1)
  - HAEMORRHAGE [None]
